FAERS Safety Report 4681814-X (Version None)
Quarter: 2005Q2

REPORT INFORMATION
  Report Type: 
  Country: None (occurrence: None)
  Receive Date: 20050602
  Receipt Date: 20050520
  Transmission Date: 20051028
  Serious: Yes (Other)
  Sender: FDA-Public Use
  Company Number: 2005S1000162

PATIENT
  Sex: Female

DRUGS (1)
  1. ACITRETIN (ACITRETIN) (25 MG) [Suspect]
     Dosage: VAG
     Route: 067
     Dates: start: 20050401

REACTIONS (2)
  - PREGNANCY OF PARTNER [None]
  - TRANSMISSION OF DRUG VIA SEMEN [None]
